FAERS Safety Report 4280706-8 (Version None)
Quarter: 2004Q1

REPORT INFORMATION
  Report Type: 
  Country: None (occurrence: None)
  Receive Date: 20040127
  Receipt Date: 20040121
  Transmission Date: 20041129
  Serious: Yes (Hospitalization)
  Sender: FDA-Public Use
  Company Number: 2004195234US

PATIENT

DRUGS (1)
  1. GENOTROPIN [Suspect]
     Indication: DRUG USE FOR UNKNOWN INDICATION
     Dosage: UNK, UNK UNK
     Route: 065
     Dates: start: 20040101

REACTIONS (1)
  - CHOLELITHIASIS [None]
